FAERS Safety Report 7376557-8 (Version None)
Quarter: 2011Q1

REPORT INFORMATION
  Report Type: 
  Country: None (occurrence: None)
  Receive Date: 20110317
  Receipt Date: 20110302
  Transmission Date: 20110831
  Serious: No
  Sender: FDA-Public Use
  Company Number: 2011-00079

PATIENT
  Sex: Female

DRUGS (1)
  1. ZICAM ORAL PRODUCTS [Suspect]
     Dosage: 2  DOSES X 1 DAY
     Dates: start: 20110302, end: 20110302

REACTIONS (1)
  - AGEUSIA [None]
